FAERS Safety Report 4667409-2 (Version None)
Quarter: 2005Q2

REPORT INFORMATION
  Report Type: 
  Country: None (occurrence: None)
  Receive Date: 20050520
  Receipt Date: 20041027
  Transmission Date: 20051028
  Serious: Yes (Other)
  Sender: FDA-Public Use
  Company Number: PHEH2004US11651

PATIENT
  Age: 80 Year
  Sex: Female

DRUGS (16)
  1. NORVASC [Concomitant]
     Indication: HYPERTENSION
     Dosage: 5 MG, QD
  2. DITROPAN XL [Concomitant]
     Indication: URINARY INCONTINENCE
     Dosage: 5 MG, QD
  3. OXYCONTIN [Concomitant]
     Indication: PAIN
     Dosage: 10 MG, Q6H
     Dates: start: 20030101, end: 20030501
  4. PRILOSEC [Concomitant]
     Indication: GASTRITIS
     Dosage: 20 MG, QD
     Dates: end: 20030801
  5. ARIMIDEX [Concomitant]
     Indication: BREAST CANCER
     Dosage: 1 MG, QD
     Dates: end: 20030101
  6. ARIMIDEX [Concomitant]
     Dosage: 1 MG, QD
     Dates: start: 20030201, end: 20030601
  7. DURAGESIC-100 [Concomitant]
     Indication: PAIN
     Dosage: 25 UG, QD
     Dates: start: 20030520
  8. FASLODEX [Concomitant]
     Indication: BREAST CANCER
     Dosage: 250 MG, QMO
     Route: 030
     Dates: start: 20030708
  9. VIOXX [Concomitant]
     Indication: ARTHRITIS
  10. NEXIUM [Concomitant]
     Indication: GASTRITIS
     Dosage: 40 MG, QD
     Dates: start: 20030805, end: 20040301
  11. XELODA [Concomitant]
     Indication: BREAST CANCER
     Dosage: UNK, Q 3 WEEKS
     Dates: start: 20030930, end: 20040501
  12. METOCLOPRAMIDE [Concomitant]
     Dosage: 5 MG, QD
     Dates: start: 20030805
  13. ACIPHEX [Concomitant]
     Dosage: 20 MG, QD
     Dates: start: 20040301
  14. DEXAMETHASONE [Concomitant]
     Indication: PAIN
     Dosage: UNK MG, PRN
     Dates: start: 20040607
  15. WELLBUTRIN [Concomitant]
     Indication: ANXIETY
     Dates: start: 20040615
  16. ZOMETA [Suspect]
     Indication: BREAST CANCER METASTATIC
     Dosage: 4 MG EVERY MONTH
     Dates: start: 20030530, end: 20040810

REACTIONS (5)
  - BACTERIAL INFECTION [None]
  - JAW DISORDER [None]
  - OSTEONECROSIS [None]
  - PRIMARY SEQUESTRUM [None]
  - TOOTH EXTRACTION [None]
